FAERS Safety Report 15316376 (Version 2)
Quarter: 2018Q4

REPORT INFORMATION
  Report Type: Report from Study
  Country: JP (occurrence: JP)
  Receive Date: 20180824
  Receipt Date: 20181211
  Transmission Date: 20190204
  Serious: Yes (Hospitalization, Other)
  Sender: FDA-Public Use
  Company Number: JP-VIFOR (INTERNATIONAL) INC.-VIT-2018-08424

PATIENT
  Age: 79 Year
  Sex: Female
  Weight: 41.4 kg

DRUGS (11)
  1. NIFEDIPINE. [Concomitant]
     Active Substance: NIFEDIPINE
     Route: 048
  2. MAXACALCITOL [Concomitant]
     Active Substance: MAXACALCITOL
  3. EPOETIN ALFA [Concomitant]
     Active Substance: ERYTHROPOIETIN
     Dates: start: 20170124, end: 20170216
  4. DOXAZOSIN [Concomitant]
     Active Substance: DOXAZOSIN\DOXAZOSIN MESYLATE
     Route: 048
  5. KAYEXALATE [Concomitant]
     Active Substance: SODIUM POLYSTYRENE SULFONATE
     Route: 048
  6. LETROZOLE. [Concomitant]
     Active Substance: LETROZOLE
     Route: 048
     Dates: start: 20160720, end: 20160928
  7. EPOETIN ALFA [Concomitant]
     Active Substance: ERYTHROPOIETIN
     Dates: start: 20170418, end: 20170523
  8. ATENOLOL. [Concomitant]
     Active Substance: ATENOLOL
     Route: 048
  9. VELPHORO [Suspect]
     Active Substance: FERRIC OXYHYDROXIDE
     Indication: HYPERPHOSPHATAEMIA
     Route: 048
     Dates: start: 20160725, end: 20170220
  10. MICARDIS [Concomitant]
     Active Substance: TELMISARTAN
     Route: 048
  11. NESP [Concomitant]
     Active Substance: DARBEPOETIN ALFA
     Dates: end: 20170121

REACTIONS (2)
  - Road traffic accident [Recovered/Resolved]
  - Polycythaemia [Recovering/Resolving]

NARRATIVE: CASE EVENT DATE: 20161108
